FAERS Safety Report 10723830 (Version 1)
Quarter: 2015Q1

REPORT INFORMATION
  Report Type: Spontaneous
  Country: TR (occurrence: None)
  Receive Date: 20150115
  Receipt Date: 20150115
  Transmission Date: 20150721
  Serious: Yes (Hospitalization, Other)
  Sender: FDA-Public Use
  Company Number: 2015JUB00003

PATIENT
  Age: 67 Year
  Sex: Male

DRUGS (3)
  1. QUETIAPINE (QUETIAPINE) UNKNOWN, UNKNOWN [Suspect]
     Active Substance: QUETIAPINE
     Indication: MAJOR DEPRESSION
  2. METFORMIN [Concomitant]
     Active Substance: METFORMIN HYDROCHLORIDE
  3. GLICLAZIDE (GLICLAZIDE) [Concomitant]
     Active Substance: GLICLAZIDE

REACTIONS (10)
  - Acute kidney injury [None]
  - Sinus tachycardia [None]
  - Confusional state [None]
  - Somnolence [None]
  - Hypernatraemia [None]
  - Hyperosmolar hyperglycaemic state [None]
  - Atrioventricular block first degree [None]
  - Hypophagia [None]
  - Dehydration [None]
  - Type 2 diabetes mellitus [None]
